FAERS Safety Report 8601320-7 (Version None)
Quarter: 2012Q3

REPORT INFORMATION
  Report Type: 
  Country: None (occurrence: None)
  Receive Date: 20120817
  Receipt Date: 20120806
  Transmission Date: 20120928
  Serious: Yes (Hospitalization)
  Sender: FDA-Public Use
  Company Number: FR-FRI-1000037771

PATIENT
  Sex: Female

DRUGS (11)
  1. LOSARTAN POTASSIUM AND HYDROCHLOROTHIAZIDE [Suspect]
     Dosage: 1 DF
     Route: 048
  2. PHYSIOTENS [Suspect]
     Dosage: 0.4 MG
     Route: 048
  3. LANTUS [Concomitant]
     Route: 058
  4. NEBIVOLOL [Suspect]
     Dosage: 5 MG
     Route: 048
  5. INDAPAMIDE [Suspect]
     Dosage: 1.5 MG
     Route: 048
  6. PLAVIX [Concomitant]
     Route: 048
  7. ENALAPRIL MALEATE [Suspect]
     Dosage: 20 MG
     Route: 048
     Dates: end: 20120305
  8. PREVISCAN [Suspect]
     Dosage: 5 MG
     Route: 048
     Dates: start: 20120229, end: 20120303
  9. ATORVASTATIN [Concomitant]
     Route: 048
  10. HUMALOG [Concomitant]
     Route: 058
  11. LERCANIDIPINE [Suspect]
     Dosage: 20 MG
     Route: 048
     Dates: end: 20120305

REACTIONS (3)
  - HYPERKALAEMIA [None]
  - RENAL FAILURE ACUTE [None]
  - INTERNATIONAL NORMALISED RATIO INCREASED [None]
